FAERS Safety Report 6524082-6 (Version None)
Quarter: 2009Q4

REPORT INFORMATION
  Report Type: 
  Country: None (occurrence: None)
  Receive Date: 20091231
  Receipt Date: 20091221
  Transmission Date: 20100525
  Serious: Yes (Hospitalization, Other)
  Sender: FDA-Public Use
  Company Number: PHHY2009DE48682

PATIENT
  Sex: Male

DRUGS (7)
  1. TEGRETOL [Suspect]
     Indication: ALCOHOL REHABILITATION
     Dosage: 800 MG/DAY
     Route: 048
     Dates: start: 20090902, end: 20090903
  2. TEGRETOL [Suspect]
     Dosage: 600 MG/DAY
     Route: 048
     Dates: start: 20090904
  3. TEGRETOL [Suspect]
     Dosage: 200 MG/DAY
     Route: 048
     Dates: start: 20090905, end: 20090905
  4. TIAPRIDEX [Suspect]
     Indication: ALCOHOL REHABILITATION
     Dosage: 400 MG/DAY
     Route: 048
     Dates: start: 20090902
  5. TIAPRIDEX [Suspect]
     Dosage: 300 MG/DAY
     Route: 048
     Dates: start: 20090903
  6. TIAPRIDEX [Suspect]
     Dosage: 200 MG/DAY
     Route: 048
     Dates: start: 20090904
  7. TIAPRIDEX [Suspect]
     Dosage: 100 MG DAILY
     Route: 048
     Dates: start: 20090905, end: 20090905

REACTIONS (5)
  - DERMATITIS ALLERGIC [None]
  - ERYTHEMA [None]
  - NEURODERMATITIS [None]
  - PRURITUS [None]
  - RASH [None]
